FAERS Safety Report 25095399 (Version 2)
Quarter: 2025Q1

REPORT INFORMATION
  Report Type: Spontaneous
  Country: PT (occurrence: PT)
  Receive Date: 20250319
  Receipt Date: 20250326
  Transmission Date: 20250408
  Serious: Yes (Hospitalization, Other)
  Sender: SANOFI AVENTIS
  Company Number: PT-EMA-DD-20250307-7482643-062743

PATIENT
  Age: 77 Year
  Sex: Female

DRUGS (2)
  1. ASPIRIN [Suspect]
     Active Substance: ASPIRIN
     Indication: Product used for unknown indication
  2. CLOPIDOGREL BISULFATE [Suspect]
     Active Substance: CLOPIDOGREL BISULFATE
     Indication: Product used for unknown indication

REACTIONS (6)
  - Normochromic normocytic anaemia [Unknown]
  - Diverticulum intestinal haemorrhagic [Unknown]
  - Diverticulitis [Unknown]
  - Large intestinal haemorrhage [Unknown]
  - Haematochezia [Unknown]
  - Diverticulum intestinal [Unknown]
